FAERS Safety Report 7039389-6 (Version None)
Quarter: 2010Q4

REPORT INFORMATION
  Report Type: 
  Country: None (occurrence: None)
  Receive Date: 20101012
  Receipt Date: 20101005
  Transmission Date: 20110411
  Serious: Yes (Hospitalization)
  Sender: FDA-Public Use
  Company Number: FR-SANOFI-AVENTIS-2010SA059539

PATIENT
  Age: 89 Year
  Sex: Female

DRUGS (13)
  1. LASIX [Suspect]
     Route: 048
     Dates: start: 20100212, end: 20100216
  2. CORTANCYL [Suspect]
     Route: 048
     Dates: start: 20100212, end: 20100216
  3. TAVANIC [Suspect]
     Route: 048
     Dates: start: 20100212, end: 20100216
  4. PULMICORT [Suspect]
     Dosage: DOSE:1 UNIT(S)
     Route: 055
     Dates: start: 20100212, end: 20100216
  5. VENTOLIN [Suspect]
     Dosage: DOSE:1 UNIT(S)
     Route: 055
     Dates: start: 20100212, end: 20100216
  6. PLAVIX [Concomitant]
     Indication: ATHEROSCLEROSIS PROPHYLAXIS
     Route: 048
  7. COAPROVEL [Concomitant]
     Route: 048
     Dates: end: 20100216
  8. CACIT D3 [Concomitant]
     Dosage: DOSE:1 UNIT(S)
     Route: 048
     Dates: end: 20100216
  9. FORLAX [Concomitant]
     Indication: CONSTIPATION
     Route: 048
     Dates: end: 20100216
  10. VASTAREL ^BIOPHARMA^ [Concomitant]
     Indication: ANGINA PECTORIS
     Route: 048
     Dates: end: 20100216
  11. DIAMICRON [Concomitant]
     Route: 048
     Dates: end: 20100216
  12. HYPERIUM [Concomitant]
     Route: 048
  13. ARICEPT [Concomitant]
     Route: 048

REACTIONS (2)
  - CONFUSIONAL STATE [None]
  - HALLUCINATION [None]
